FAERS Safety Report 20430869 (Version 1)
Quarter: 2022Q1

REPORT INFORMATION
  Report Type: Report from Study
  Country: FR (occurrence: FR)
  Receive Date: 20220204
  Receipt Date: 20220204
  Transmission Date: 20220423
  Serious: Yes (Hospitalization)
  Sender: FDA-Public Use
  Company Number: FR-SERVIER-S21007371

PATIENT

DRUGS (5)
  1. PEGASPARGASE [Suspect]
     Active Substance: PEGASPARGASE
     Indication: Acute lymphocytic leukaemia
     Dosage: 2775 IU, D12
     Route: 042
     Dates: start: 20210413, end: 20210413
  2. TN UNSPECIFIED [Concomitant]
     Indication: Acute lymphocytic leukaemia
     Dosage: 33 MG, D8, D15, D22, D29
     Route: 042
     Dates: start: 20210409, end: 20210430
  3. TN UNSPECIFIED [Concomitant]
     Indication: Acute lymphocytic leukaemia
     Dosage: 1.6 MG, D8, D15, D22, D29
     Route: 042
     Dates: start: 20210409, end: 20210430
  4. TN UNSPECIFIED [Concomitant]
     Indication: Acute lymphocytic leukaemia
     Dosage: 15 MG, D9, D13, D18, D24
     Route: 037
     Dates: start: 20210410, end: 20210427
  5. TN UNSPECIFIED [Concomitant]
     Indication: Acute lymphocytic leukaemia
     Dosage: 11 MG, D8 TO D28
     Route: 048
     Dates: start: 20210409, end: 20210429

REACTIONS (1)
  - Malnutrition [Recovered/Resolved]

NARRATIVE: CASE EVENT DATE: 20210503
